FAERS Safety Report 20572095 (Version 1)
Quarter: 2022Q1

REPORT INFORMATION
  Report Type: Spontaneous
  Country: US (occurrence: US)
  Receive Date: 20220309
  Receipt Date: 20220309
  Transmission Date: 20220423
  Serious: No
  Sender: FDA-Public Use
  Company Number: US-PFIZER INC-2021695874

PATIENT
  Age: 7 Year
  Sex: Female
  Weight: 21.77 kg

DRUGS (2)
  1. GENOTROPIN [Suspect]
     Active Substance: SOMATROPIN
     Indication: Turner^s syndrome
     Dosage: 0.6 MG, DAILY
  2. GENOTROPIN [Suspect]
     Active Substance: SOMATROPIN
     Dosage: 0.6 MG, (EVERY SINGLE NIGHT)
     Dates: start: 202101

REACTIONS (5)
  - Drug dose omission by device [Unknown]
  - Device defective [Unknown]
  - Device leakage [Unknown]
  - Liquid product physical issue [Unknown]
  - Poor quality product administered [Unknown]
